FAERS Safety Report 7810877-5 (Version None)
Quarter: 2011Q4

REPORT INFORMATION
  Report Type: 
  Country: None (occurrence: None)
  Receive Date: 20111012
  Receipt Date: 20111012
  Transmission Date: 20120403
  Serious: Yes (Other)
  Sender: FDA-Public Use
  Company Number: None

PATIENT
  Age: 53 Year
  Sex: Female

DRUGS (2)
  1. PEGASYS [Suspect]
     Indication: HEPATITIS C
     Dosage: 180 MCG Q WEEK SQ
     Route: 058
     Dates: start: 20110809
  2. RIBAVIRIN [Suspect]
     Dosage: QD PO
     Route: 048

REACTIONS (2)
  - ANAEMIA [None]
  - STOMATITIS [None]
